FAERS Safety Report 15375992 (Version 1)
Quarter: 2018Q3

REPORT INFORMATION
  Report Type: Spontaneous
  Country: US (occurrence: US)
  Receive Date: 20180912
  Receipt Date: 20180912
  Transmission Date: 20181010
  Serious: No
  Sender: FDA-Public Use
  Company Number: US-PFIZER INC-2017376770

PATIENT
  Age: 14 Year
  Sex: Male

DRUGS (3)
  1. GENOTROPIN [Suspect]
     Active Substance: SOMATROPIN
     Dosage: 2.6 MG, ALTERNATE DAY
     Dates: start: 20180711
  2. GENOTROPIN [Suspect]
     Active Substance: SOMATROPIN
     Dosage: UNK, DAILY [ALTERNATING DOSE 2.4 AND 2.6 MG DAILY]
     Dates: start: 20141126
  3. GENOTROPIN [Suspect]
     Active Substance: SOMATROPIN
     Dosage: 2.4 MG, ALTERNATE DAY
     Dates: start: 20180711

REACTIONS (6)
  - Blood thyroid stimulating hormone increased [Unknown]
  - Thyroxine free decreased [Unknown]
  - Blood triglycerides increased [Unknown]
  - Non-high-density lipoprotein cholesterol increased [Unknown]
  - Total cholesterol/HDL ratio decreased [Unknown]
  - High density lipoprotein decreased [Unknown]

NARRATIVE: CASE EVENT DATE: 20180109
